FAERS Safety Report 21331018 (Version 4)
Quarter: 2022Q4

REPORT INFORMATION
  Report Type: Report from Study
  Country: None (occurrence: CA)
  Receive Date: 20220914
  Receipt Date: 20221213
  Transmission Date: 20230112
  Serious: Yes (Other)
  Sender: FDA-Public Use
  Company Number: CA-AKCEA THERAPEUTICS, INC.-2022IS003981

PATIENT
  Age: 71 Year
  Sex: Female

DRUGS (8)
  1. TEGSEDI [Suspect]
     Active Substance: INOTERSEN SODIUM
     Indication: Hereditary neuropathic amyloidosis
     Route: 058
  2. DEVICE [Suspect]
     Active Substance: DEVICE
  3. AVENTYL [Concomitant]
     Active Substance: NORTRIPTYLINE HYDROCHLORIDE
     Route: 065
  4. FUROSEMIDE [Concomitant]
     Active Substance: FUROSEMIDE
     Route: 065
  5. ALBUTEROL [Concomitant]
     Active Substance: ALBUTEROL
  6. VENTOLIN [Concomitant]
     Active Substance: ALBUTEROL SULFATE
     Route: 065
  7. VYNDAMAX [Concomitant]
     Active Substance: TAFAMIDIS
     Route: 065
  8. TEGSEDI [Suspect]
     Active Substance: INOTERSEN SODIUM
     Route: 058

REACTIONS (21)
  - Blood albumin decreased [Recovering/Resolving]
  - Blood cholesterol increased [Recovering/Resolving]
  - Blood creatinine increased [Recovering/Resolving]
  - Brain natriuretic peptide increased [Recovering/Resolving]
  - COVID-19 [Recovering/Resolving]
  - Creatinine urine increased [Recovering/Resolving]
  - Low density lipoprotein increased [Recovering/Resolving]
  - Lymphocyte count decreased [Recovering/Resolving]
  - Mean cell haemoglobin increased [Recovering/Resolving]
  - Mean cell volume increased [Recovering/Resolving]
  - Protein total decreased [Recovering/Resolving]
  - Total cholesterol/HDL ratio increased [Recovering/Resolving]
  - Troponin T increased [Recovering/Resolving]
  - Urine albumin/creatinine ratio increased [Recovering/Resolving]
  - Urine analysis abnormal [Recovering/Resolving]
  - Blood urea increased [Recovering/Resolving]
  - Cardiac failure [Recovering/Resolving]
  - Protein urine present [Recovering/Resolving]
  - Urine protein/creatinine ratio increased [Recovering/Resolving]
  - Glomerular filtration rate decreased [Recovering/Resolving]
  - Hypotension [Recovering/Resolving]
